FAERS Safety Report 6253118-5 (Version None)
Quarter: 2009Q2

REPORT INFORMATION
  Report Type: 
  Country: None (occurrence: None)
  Receive Date: 20090629
  Receipt Date: 20090619
  Transmission Date: 20091009
  Serious: Yes (Hospitalization)
  Sender: FDA-Public Use
  Company Number: 2009007396

PATIENT
  Age: 38 Year
  Sex: Male
  Weight: 95.2554 kg

DRUGS (1)
  1. PROVIGIL [Suspect]
     Indication: DRUG INEFFECTIVE
     Dosage: 200 MG (200 MG, 1 IN 1 D), ORAL
     Route: 048
     Dates: start: 20070601, end: 20080101

REACTIONS (3)
  - COELIAC DISEASE [None]
  - DRUG INEFFECTIVE [None]
  - HEMIPARESIS [None]
